FAERS Safety Report 24587863 (Version 2)
Quarter: 2025Q1

REPORT INFORMATION
  Report Type: Report from Study
  Country: PK (occurrence: PK)
  Receive Date: 20241107
  Receipt Date: 20250102
  Transmission Date: 20250408
  Serious: Yes (Death, Other)
  Sender: ROCHE
  Company Number: PK-ROCHE-10000125614

PATIENT
  Age: 55 Year
  Sex: Female

DRUGS (1)
  1. RITUXIMAB [Suspect]
     Active Substance: RITUXIMAB
     Indication: Follicular lymphoma
     Route: 042
     Dates: start: 20241001

REACTIONS (2)
  - Follicular lymphoma [Unknown]
  - Neoplasm malignant [Fatal]

NARRATIVE: CASE EVENT DATE: 20241021
